FAERS Safety Report 21315867 (Version 1)
Quarter: 2022Q3

REPORT INFORMATION
  Report Type: Report from Study
  Country: DE (occurrence: DE)
  Receive Date: 20220910
  Receipt Date: 20220910
  Transmission Date: 20221027
  Serious: Yes (Other)
  Sender: FDA-Public Use
  Company Number: DE-CELLTRION INC.-2022DE014328

PATIENT

DRUGS (3)
  1. TRASTUZUMAB [Suspect]
     Active Substance: TRASTUZUMAB
     Indication: Breast cancer
     Dosage: DATE OF LAST DOSE PRIOR EVENT: 11/MAY/2022LAST DOSE PRIOR EVENT: 588 MG
     Route: 065
     Dates: start: 20220420
  2. PERTUZUMAB [Suspect]
     Active Substance: PERTUZUMAB
     Indication: Breast cancer
     Dosage: DATE OF LAST DOSE PRIOR EVENT: 11/MAY/2022LAST DOSE PRIOR EVENT: 420 MG
     Route: 065
     Dates: start: 20220420
  3. LOPERAMIDE [Concomitant]
     Active Substance: LOPERAMIDE
     Dosage: UNK, QD
     Dates: start: 202110, end: 202201

REACTIONS (2)
  - Polyneuropathy [Not Recovered/Not Resolved]
  - Underdose [Unknown]
